FAERS Safety Report 24119246 (Version 1)
Quarter: 2024Q3

REPORT INFORMATION
  Report Type: Spontaneous
  Country: DE (occurrence: DE)
  Receive Date: 20240722
  Receipt Date: 20240722
  Transmission Date: 20241016
  Serious: Yes (Other)
  Sender: TORRENT
  Company Number: None

PATIENT
  Age: 39 Year
  Sex: Female
  Weight: 77 kg

DRUGS (12)
  1. EZETIMIBE [Suspect]
     Active Substance: EZETIMIBE
     Indication: Product used for unknown indication
     Dosage: UNKNOWN
     Route: 048
  2. ROSUVASTATIN [Suspect]
     Active Substance: ROSUVASTATIN
     Indication: Hypercholesterolaemia
     Dosage: 40
     Route: 048
  3. SIMVASTATIN [Suspect]
     Active Substance: SIMVASTATIN
     Indication: Hypercholesterolaemia
     Dosage: 40
     Route: 048
  4. ATORVASTATIN [Suspect]
     Active Substance: ATORVASTATIN
     Indication: Hypercholesterolaemia
     Dosage: 80
     Route: 048
  5. BEMPEDOIC ACID [Suspect]
     Active Substance: BEMPEDOIC ACID
     Indication: Product used for unknown indication
     Route: 048
  6. CLOPIDOGREL [Concomitant]
     Active Substance: CLOPIDOGREL BISULFATE
     Indication: Coronary artery disease
     Route: 048
  7. FALITHROM [Concomitant]
     Active Substance: PHENPROCOUMON
     Indication: Coagulopathy
     Dosage: UNKNOWN
     Route: 048
  8. NEBIVOLOL [Concomitant]
     Active Substance: NEBIVOLOL
     Indication: Coronary artery disease
     Route: 048
  9. SACUBITRIL [Concomitant]
     Active Substance: SACUBITRIL
     Indication: Ischaemic cardiomyopathy
     Route: 048
  10. SPIRONOLACTONE [Concomitant]
     Active Substance: SPIRONOLACTONE
     Indication: Ischaemic cardiomyopathy
     Route: 048
  11. TORSEMIDE [Concomitant]
     Active Substance: TORSEMIDE
     Indication: Ischaemic cardiomyopathy
     Route: 048
  12. VALSARTAN [Concomitant]
     Active Substance: VALSARTAN
     Indication: Ischaemic cardiomyopathy
     Route: 048

REACTIONS (5)
  - Rash [Recovered/Resolved]
  - Fatigue [Recovered/Resolved]
  - Musculoskeletal discomfort [Recovered/Resolved]
  - Myalgia [Recovered/Resolved]
  - Muscle rupture [Unknown]

NARRATIVE: CASE EVENT DATE: 20090101
